FAERS Safety Report 6463914-7 (Version None)
Quarter: 2009Q4

REPORT INFORMATION
  Report Type: 
  Country: None (occurrence: None)
  Receive Date: 20091201
  Receipt Date: 20091120
  Transmission Date: 20100525
  Serious: Yes (Other)
  Sender: FDA-Public Use
  Company Number: FR-ROCHE-667533

PATIENT
  Sex: Female
  Weight: 68 kg

DRUGS (2)
  1. TAMIFLU [Suspect]
     Route: 048
     Dates: start: 20090924, end: 20090929
  2. LEVOTHYROXINE SODIUM [Concomitant]
     Route: 048
     Dates: start: 19990101

REACTIONS (6)
  - ABDOMINAL PAIN [None]
  - BALANCE DISORDER [None]
  - CONJUNCTIVITIS [None]
  - DISTURBANCE IN ATTENTION [None]
  - MYALGIA [None]
  - TREMOR [None]
